FAERS Safety Report 5826988-X (Version None)
Quarter: 2008Q3

REPORT INFORMATION
  Report Type: 
  Country: None (occurrence: None)
  Receive Date: 20080725
  Receipt Date: 20080718
  Transmission Date: 20090109
  Serious: Yes (Hospitalization)
  Sender: FDA-Public Use
  Company Number: 89287

PATIENT
  Age: 69 Year
  Sex: Male

DRUGS (2)
  1. IBUPROFEN TABLETS [Suspect]
     Indication: BACK PAIN
     Dosage: 600 MG/3/1 DAYS/ ORAL
     Route: 048
     Dates: end: 20080623
  2. TRAMADOL HCL [Concomitant]

REACTIONS (2)
  - DUODENAL ULCER [None]
  - HAEMATEMESIS [None]
